FAERS Safety Report 5420926-X (Version None)
Quarter: 2007Q3

REPORT INFORMATION
  Report Type: 
  Country: None (occurrence: None)
  Receive Date: 20070821
  Receipt Date: 20070817
  Transmission Date: 20080115
  Serious: Yes (Other)
  Sender: FDA-Public Use
  Company Number: TH-BRISTOL-MYERS SQUIBB COMPANY-13880885

PATIENT
  Age: 57 Year
  Sex: Female

DRUGS (12)
  1. ABATACEPT [Suspect]
     Indication: RHEUMATOID ARTHRITIS
     Dosage: INTIAL DOSE 500MG/MO IV,FROM17APR03-TO18MAR04.
     Route: 042
     Dates: start: 20040412
  2. METHOTREXATE [Concomitant]
     Dates: start: 20070411, end: 20070718
  3. DICLOFENAC [Concomitant]
     Dates: start: 20060510, end: 20070718
  4. AMLODIPINE [Concomitant]
     Dates: start: 20030904
  5. CALTRATE [Concomitant]
     Dates: start: 20041028
  6. OMEPRAZOLE [Concomitant]
     Dates: start: 20050707
  7. LORATADINE [Concomitant]
     Dates: start: 20051125
  8. PARACETAMOL [Concomitant]
     Dates: start: 20070411
  9. DICLOFENAC [Concomitant]
     Dates: start: 20070803
  10. VITAMIN B 1-6-12 [Concomitant]
     Dates: start: 20070720, end: 20070803
  11. FOLIC ACID [Concomitant]
     Dates: start: 20030211, end: 20070803
  12. AMOKSIKLAV [Concomitant]
     Dates: start: 20070606, end: 20070613

REACTIONS (1)
  - LYMPH NODE TUBERCULOSIS [None]
